FAERS Safety Report 6483640-8 (Version None)
Quarter: 2009Q4

REPORT INFORMATION
  Report Type: 
  Country: None (occurrence: None)
  Receive Date: 20091209
  Receipt Date: 20091130
  Transmission Date: 20100525
  Serious: Yes (Hospitalization)
  Sender: FDA-Public Use
  Company Number: PHHO2009US14850

PATIENT
  Sex: Female

DRUGS (7)
  1. LETROZOLE [Suspect]
     Indication: BREAST CANCER
     Dosage: 2.5 MG, QD
     Route: 048
     Dates: start: 20081029
  2. DASATINIB [Suspect]
     Indication: BREAST CANCER
     Dosage: 100 MG, QD
     Route: 048
     Dates: start: 20081225
  3. LEVOTHYROXINE SODIUM [Concomitant]
  4. LEXAPRO [Concomitant]
  5. AREDIA [Concomitant]
  6. PRAVASTATIN [Concomitant]
  7. DYAZIDE [Concomitant]

REACTIONS (6)
  - CARDIOMEGALY [None]
  - DIASTOLIC DYSFUNCTION [None]
  - MITRAL VALVE INCOMPETENCE [None]
  - PERICARDIAL EFFUSION [None]
  - PERICARDIAL EXCISION [None]
  - TRICUSPID VALVE INCOMPETENCE [None]
